FAERS Safety Report 23234880 (Version 2)
Quarter: 2023Q4

REPORT INFORMATION
  Report Type: Spontaneous
  Country: PT (occurrence: PT)
  Receive Date: 20231128
  Receipt Date: 20231201
  Transmission Date: 20240110
  Serious: Yes (Other)
  Sender: FDA-Public Use
  Company Number: PT-ORGANON-O2311PRT002642

PATIENT
  Age: 49 Year
  Sex: Female

DRUGS (3)
  1. ETONOGESTREL [Suspect]
     Active Substance: ETONOGESTREL
     Indication: Contraception
     Dosage: 1 IMPLANT
     Route: 059
     Dates: start: 2021
  2. ETONOGESTREL [Suspect]
     Active Substance: ETONOGESTREL
     Dosage: 1 IMPLANT (4 IMPLANT)
     Route: 059
     Dates: start: 20220204
  3. ETONOGESTREL [Concomitant]
     Active Substance: ETONOGESTREL
     Dosage: 1 IMPLANT (2 OR 3 IMPLANT)
     Route: 059

REACTIONS (2)
  - Implant site abscess [Recovered/Resolved]
  - Device expulsion [Recovered/Resolved]
